FAERS Safety Report 4415157-6 (Version None)
Quarter: 2004Q3

REPORT INFORMATION
  Report Type: 
  Country: None (occurrence: None)
  Receive Date: 20040730
  Receipt Date: 20040720
  Transmission Date: 20050211
  Serious: Yes (Hospitalization, Other)
  Sender: FDA-Public Use
  Company Number: US-2004-029004

PATIENT
  Age: 51 Year
  Sex: Male

DRUGS (3)
  1. BETASERON [Suspect]
     Indication: MULTIPLE SCLEROSIS
     Dosage: 8 MIU,  EVERY 2D, SUBCUTANEOUS
     Route: 058
     Dates: start: 20030814
  2. PROCARDIA [Concomitant]
  3. COREG [Concomitant]

REACTIONS (6)
  - ABASIA [None]
  - BALANCE DISORDER [None]
  - BLOOD PRESSURE INCREASED [None]
  - FALL [None]
  - HEART RATE DECREASED [None]
  - MULTIPLE SCLEROSIS [None]
